FAERS Safety Report 8252633-2 (Version None)
Quarter: 2012Q2

REPORT INFORMATION
  Report Type: 
  Country: None (occurrence: None)
  Receive Date: 20120402
  Receipt Date: 20111122
  Transmission Date: 20120825
  Serious: No
  Sender: FDA-Public Use
  Company Number: US-ABBOTT-11P-163-0877163-00

PATIENT
  Sex: Male
  Weight: 72.64 kg

DRUGS (4)
  1. LIPITOR [Concomitant]
     Indication: BLOOD CHOLESTEROL
  2. ANDROGEL [Suspect]
     Indication: BLOOD TESTOSTERONE DECREASED
     Dosage: ONE PACKET PER DAY
     Dates: start: 20111101
  3. RAMIPRIL [Concomitant]
     Indication: PROPHYLAXIS
  4. METFORMIN HCL [Concomitant]
     Indication: DIABETES MELLITUS

REACTIONS (1)
  - BLOOD GLUCOSE INCREASED [None]
